FAERS Safety Report 8000620-1 (Version None)
Quarter: 2011Q4

REPORT INFORMATION
  Report Type: 
  Country: None (occurrence: None)
  Receive Date: 20111222
  Receipt Date: 20111215
  Transmission Date: 20120403
  Serious: Yes (Other)
  Sender: FDA-Public Use
  Company Number: AT-JNJFOC-20111204106

PATIENT

DRUGS (38)
  1. DOXORUBICIN HCL [Suspect]
     Dosage: CYCLE 6
     Route: 065
  2. RITUXIMAB [Suspect]
     Dosage: CYCLE 3
     Route: 065
  3. CYCLOPHOSPHAMIDE [Suspect]
     Dosage: CYCLE 3
     Route: 065
  4. DALTEPARIN SODIUM [Concomitant]
     Indication: THROMBOSIS PROPHYLAXIS
     Route: 058
  5. VINCRISTINE [Suspect]
     Indication: MANTLE CELL LYMPHOMA
     Dosage: CYCLE 6
     Route: 065
  6. VINCRISTINE [Suspect]
     Dosage: CYCLE 3
     Route: 065
  7. PREDNISONE [Suspect]
     Dosage: CYCLE 2
     Route: 065
  8. DOXORUBICIN HCL [Suspect]
     Indication: MANTLE CELL LYMPHOMA
     Dosage: CYCLE 6
     Route: 042
  9. DOXORUBICIN HCL [Suspect]
     Dosage: CYCLE 3
     Route: 042
  10. CYCLOPHOSPHAMIDE [Suspect]
     Dosage: CYCLE 5
     Route: 065
  11. DOXORUBICIN HCL [Suspect]
     Dosage: CYCLE 4
     Route: 065
  12. VINCRISTINE [Suspect]
     Dosage: CYCLE 4
     Route: 065
  13. DOXORUBICIN HCL [Suspect]
     Dosage: CYCLE 2
     Route: 042
  14. RITUXIMAB [Suspect]
     Dosage: CYCLE 5
     Route: 065
  15. RITUXIMAB [Suspect]
     Dosage: CYCLE 6
     Route: 065
  16. RITUXIMAB [Suspect]
     Dosage: CYCLE 1
     Route: 065
  17. CYCLOPHOSPHAMIDE [Suspect]
     Dosage: CYCLE 6
     Route: 065
  18. VINCRISTINE [Suspect]
     Dosage: CYCLE 2
     Route: 065
  19. DOXORUBICIN HCL [Suspect]
     Dosage: CYCLE 5
     Route: 042
  20. DOXORUBICIN HCL [Suspect]
     Dosage: CYCLE 1
     Route: 042
  21. DOXORUBICIN HCL [Suspect]
     Dosage: CYCLE 1
     Route: 065
  22. DOXORUBICIN HCL [Suspect]
     Dosage: CYCLE 2
     Route: 065
  23. RITUXIMAB [Suspect]
     Indication: MANTLE CELL LYMPHOMA
     Dosage: CYCLE 2
     Route: 065
  24. VINCRISTINE [Suspect]
     Dosage: CYCLE 5
     Route: 065
  25. PREDNISONE [Suspect]
     Dosage: CYCLE 4
     Route: 065
  26. PREDNISONE [Suspect]
     Dosage: CYCLE 3
     Route: 065
  27. PREDNISONE [Suspect]
     Dosage: CYCLE 6
     Route: 065
  28. THALIDOMIDE [Suspect]
     Indication: MANTLE CELL LYMPHOMA
     Route: 065
  29. DOXORUBICIN HCL [Suspect]
     Dosage: CYCLE 4
     Route: 042
  30. CYCLOPHOSPHAMIDE [Suspect]
     Indication: MANTLE CELL LYMPHOMA
     Dosage: CYCLE 1
     Route: 065
  31. CYCLOPHOSPHAMIDE [Suspect]
     Dosage: CYCLE 2
     Route: 065
  32. VINCRISTINE [Suspect]
     Dosage: CYCLE 1
     Route: 065
  33. PREDNISONE [Suspect]
     Indication: MANTLE CELL LYMPHOMA
     Dosage: CYCLE 5
     Route: 065
  34. PREDNISONE [Suspect]
     Dosage: CYCLE 1
     Route: 065
  35. DOXORUBICIN HCL [Suspect]
     Dosage: CYCLE 5
     Route: 065
  36. DOXORUBICIN HCL [Suspect]
     Dosage: CYCLE 3
     Route: 065
  37. RITUXIMAB [Suspect]
     Dosage: CYCLE 4
     Route: 065
  38. CYCLOPHOSPHAMIDE [Suspect]
     Dosage: CYCLE 4
     Route: 065

REACTIONS (1)
  - NEUROPATHY PERIPHERAL [None]
